FAERS Safety Report 12308919 (Version 1)
Quarter: 2016Q2

REPORT INFORMATION
  Report Type: Spontaneous
  Country: US (occurrence: None)
  Receive Date: 20160426
  Receipt Date: 20160426
  Transmission Date: 20160815
  Serious: Yes (Other)
  Sender: FDA-Public Use
  Company Number: None

PATIENT
  Age: 51 Year
  Sex: Female
  Weight: 104.6 kg

DRUGS (1)
  1. ESCITALOPRAM [Suspect]
     Active Substance: ESCITALOPRAM OXALATE
     Indication: ANXIETY DISORDER
     Dosage: PRIOR TO  UP TO 7/14/15
     Route: 048
     Dates: end: 20150714

REACTIONS (3)
  - Depression [None]
  - Product substitution issue [None]
  - Anxiety [None]

NARRATIVE: CASE EVENT DATE: 20150714
